FAERS Safety Report 24640113 (Version 1)
Quarter: 2024Q4

REPORT INFORMATION
  Report Type: Report from Study
  Country: US (occurrence: US)
  Receive Date: 20241120
  Receipt Date: 20241120
  Transmission Date: 20250115
  Serious: Yes (Other)
  Sender: ALEXION PHARMACEUTICALS
  Company Number: US-AstraZeneca-CH-00746289A

PATIENT

DRUGS (4)
  1. OLAPARIB [Suspect]
     Active Substance: OLAPARIB
  2. OLAPARIB [Suspect]
     Active Substance: OLAPARIB
  3. OLAPARIB [Suspect]
     Active Substance: OLAPARIB
  4. OLAPARIB [Suspect]
     Active Substance: OLAPARIB

REACTIONS (1)
  - Disease recurrence [Unknown]
